FAERS Safety Report 22062391 (Version 1)
Quarter: 2023Q1

REPORT INFORMATION
  Report Type: Spontaneous
  Country: TR (occurrence: TR)
  Receive Date: 20230305
  Receipt Date: 20230305
  Transmission Date: 20230418
  Serious: Yes (Other)
  Sender: FDA-Public Use
  Company Number: TR-AMGEN-TURSP2023035274

PATIENT
  Age: 65 Year
  Sex: Female

DRUGS (3)
  1. XGEVA [Suspect]
     Active Substance: DENOSUMAB
     Indication: Metastases to bone
     Dosage: UNK
     Route: 065
  2. LETROZOLE;RIBOCICLIB [Concomitant]
     Indication: Hormone receptor positive breast cancer
     Dosage: UNK
  3. PFIZER-BIONTECH COVID-19 VACCINE [Concomitant]
     Active Substance: TOZINAMERAN
     Dosage: 2

REACTIONS (4)
  - Breast cancer metastatic [Recovering/Resolving]
  - Stomatitis [Unknown]
  - Hyperglycaemia [Unknown]
  - Rash [Recovering/Resolving]
